FAERS Safety Report 9107552 (Version 3)
Quarter: 2013Q3

REPORT INFORMATION
  Report Type: Report from Study
  Country: US (occurrence: US)
  Receive Date: 20130221
  Receipt Date: 20130701
  Transmission Date: 20140515
  Serious: Yes (Other)
  Sender: FDA-Public Use
  Company Number: US-TEVA-387389USA

PATIENT
  Sex: Female

DRUGS (4)
  1. CLARAVIS [Suspect]
     Dosage: 30 MILLIGRAM DAILY;
     Route: 048
     Dates: start: 20130114, end: 20130115
  2. CLARAVIS [Suspect]
     Dosage: 60 MILLIGRAM DAILY;
     Route: 048
     Dates: start: 20130107, end: 201301
  3. CLARAVIS [Suspect]
     Dosage: 30 MILLIGRAM DAILY;
     Route: 048
  4. AMNESTEEM [Suspect]
     Dosage: 30 MILLIGRAM DAILY;
     Dates: start: 20121206

REACTIONS (1)
  - Unintended pregnancy [Unknown]
